FAERS Safety Report 4932934-3 (Version None)
Quarter: 2006Q1

REPORT INFORMATION
  Report Type: 
  Country: None (occurrence: None)
  Receive Date: 20060301
  Receipt Date: 20060301
  Transmission Date: 20060701
  Serious: Yes (Hospitalization)
  Sender: FDA-Public Use
  Company Number: None

PATIENT
  Sex: Female

DRUGS (1)
  1. HEPARIN [Suspect]
     Indication: PULMONARY EMBOLISM
     Dosage: DRIP IV DRIP
     Route: 041
     Dates: start: 20051113, end: 20051117

REACTIONS (2)
  - PLATELET COUNT DECREASED [None]
  - PULMONARY EMBOLISM [None]
